FAERS Safety Report 19683054 (Version 1)
Quarter: 2021Q3

REPORT INFORMATION
  Report Type: Spontaneous
  Country: US (occurrence: US)
  Receive Date: 20210810
  Receipt Date: 20210810
  Transmission Date: 20211014
  Serious: No
  Sender: FDA-Public Use
  Company Number: US-HORIZON THERAPEUTICS-HZN-2021-002068

PATIENT
  Sex: Female
  Weight: 72.7 kg

DRUGS (18)
  1. QUETIAPINE FUMARATE. [Concomitant]
     Active Substance: QUETIAPINE FUMARATE
     Dosage: 100 MG
     Route: 065
  2. LEVOTHYROXINE SODIUM. [Concomitant]
     Active Substance: LEVOTHYROXINE SODIUM
     Dosage: 137 MG
     Route: 065
  3. TEPEZZA [Suspect]
     Active Substance: TEPROTUMUMAB-TRBW
     Indication: DISORDER OF ORBIT
     Dosage: UNK UNK, EVERY 3 WEEKS
     Route: 065
  4. PRAMIPEXOLE DIHYDROCHLORIDE. [Concomitant]
     Active Substance: PRAMIPEXOLE DIHYDROCHLORIDE
     Route: 065
  5. VENLAFAXINE HCL [Concomitant]
     Active Substance: VENLAFAXINE HYDROCHLORIDE
     Route: 065
  6. OXYGEN. [Concomitant]
     Active Substance: OXYGEN
     Route: 065
  7. ROPINIROLE HCL [Concomitant]
     Active Substance: ROPINIROLE HYDROCHLORIDE
     Dosage: 0.5 MG
     Route: 065
  8. OMEPRAZOLE. [Concomitant]
     Active Substance: OMEPRAZOLE
     Dosage: 40 MG
     Route: 065
  9. SODIUM CHLORIDE 0.9% + DEXTROSE 5% [Concomitant]
  10. TRELEGY ELLIPTA [Concomitant]
     Active Substance: FLUTICASONE FUROATE\UMECLIDINIUM BROMIDE\VILANTEROL TRIFENATATE
  11. GABAPENTIN. [Concomitant]
     Active Substance: GABAPENTIN
     Dosage: 600 MG
     Route: 065
  12. SUCRALFATE. [Concomitant]
     Active Substance: SUCRALFATE
     Dosage: 1 G
     Route: 065
  13. ROSUVASTATIN CALCIUM. [Concomitant]
     Active Substance: ROSUVASTATIN CALCIUM
     Dosage: 10 MG
     Route: 065
  14. CLONAZEPAM. [Concomitant]
     Active Substance: CLONAZEPAM
     Dosage: 1 MG
     Route: 065
  15. STERILE WATER [Concomitant]
     Active Substance: WATER
     Route: 065
  16. NORMAL SALINE [Concomitant]
     Active Substance: SODIUM CHLORIDE
     Route: 065
  17. CELECOXIB. [Concomitant]
     Active Substance: CELECOXIB
     Dosage: 200 MG
     Route: 065
  18. CYCLOBENZAPRINE HCL [Concomitant]
     Active Substance: CYCLOBENZAPRINE HYDROCHLORIDE
     Dosage: 10 MG
     Route: 065

REACTIONS (2)
  - Exophthalmos [Unknown]
  - Off label use [Unknown]
